FAERS Safety Report 6441525-7 (Version None)
Quarter: 2009Q4

REPORT INFORMATION
  Report Type: 
  Country: None (occurrence: None)
  Receive Date: 20091116
  Receipt Date: 20091105
  Transmission Date: 20100525
  Serious: Yes (Disabling, Congenital Anomaly, Other)
  Sender: FDA-Public Use
  Company Number: TH-BAYER-200937193GPV

PATIENT
  Age: 0 Hour
  Sex: Female
  Weight: 35 kg

DRUGS (3)
  1. CIPROFLOXACIN [Suspect]
     Indication: GASTROENTERITIS
     Dosage: TOTAL DAILY DOSE: 1000 MG  UNIT DOSE: 500 MG
     Route: 064
     Dates: start: 20080505, end: 20080506
  2. MOTILIUM [Concomitant]
     Indication: THERAPEUTIC PROCEDURE
     Route: 064
     Dates: start: 20080505, end: 20080506
  3. PARACETAMOL [Concomitant]
     Indication: THERAPEUTIC PROCEDURE
     Route: 064
     Dates: start: 20080505, end: 20080506

REACTIONS (1)
  - DEAFNESS NEUROSENSORY [None]
